FAERS Safety Report 20710435 (Version 2)
Quarter: 2022Q2

REPORT INFORMATION
  Report Type: Report from Study
  Country: ES (occurrence: ES)
  Receive Date: 20220414
  Receipt Date: 20220429
  Transmission Date: 20220721
  Serious: Yes (Death, Other)
  Sender: FDA-Public Use
  Company Number: ES-TAKEDA-2022TUS025012

PATIENT
  Age: 58 Year

DRUGS (1)
  1. MARIBAVIR [Suspect]
     Active Substance: MARIBAVIR
     Indication: Cytomegalovirus infection
     Dosage: UNK
     Route: 065

REACTIONS (7)
  - Pneumomediastinum [Fatal]
  - Pulmonary air leakage [Fatal]
  - Bronchiolitis obliterans syndrome [Fatal]
  - Rhinovirus infection [Fatal]
  - Respiratory failure [Fatal]
  - Pneumothorax [Fatal]
  - Pneumonia [Fatal]

NARRATIVE: CASE EVENT DATE: 20211201
